FAERS Safety Report 9432592 (Version 1)
Quarter: 2013Q3

REPORT INFORMATION
  Report Type: Spontaneous
  Country: US (occurrence: US)
  Receive Date: 20130731
  Receipt Date: 20130731
  Transmission Date: 20140515
  Serious: Yes (Hospitalization)
  Sender: FDA-Public Use
  Company Number: US-ROCHE-1255279

PATIENT
  Sex: Female

DRUGS (3)
  1. HERCEPTIN [Suspect]
     Indication: BREAST CANCER
     Route: 065
     Dates: end: 20130708
  2. TAXOTERE [Suspect]
     Indication: BREAST CANCER
     Route: 065
     Dates: end: 20130624
  3. CARBOPLATIN [Suspect]
     Indication: BREAST CANCER
     Route: 065

REACTIONS (2)
  - Infection [Recovered/Resolved]
  - Wound dehiscence [Unknown]
